FAERS Safety Report 20729265 (Version 1)
Quarter: 2022Q2

REPORT INFORMATION
  Report Type: Spontaneous
  Country: LT (occurrence: LT)
  Receive Date: 20220420
  Receipt Date: 20220420
  Transmission Date: 20220721
  Serious: Yes (Other)
  Sender: FDA-Public Use
  Company Number: LT-ALKEM LABORATORIES LIMITED-LT-ALKEM-2022-01228

PATIENT

DRUGS (1)
  1. AZATHIOPRINE [Suspect]
     Active Substance: AZATHIOPRINE
     Indication: Inflammatory bowel disease
     Dosage: LOADING DOSE OF 1 MG/KG
     Route: 065

REACTIONS (1)
  - Pancreatitis [Unknown]
